FAERS Safety Report 8569297-0 (Version None)
Quarter: 2012Q3

REPORT INFORMATION
  Report Type: 
  Country: None (occurrence: None)
  Receive Date: 20120803
  Receipt Date: 20120427
  Transmission Date: 20120928
  Serious: No
  Sender: FDA-Public Use
  Company Number: US-ABBOTT-12P-163-0930011-00

PATIENT
  Sex: Male
  Weight: 86.26 kg

DRUGS (1)
  1. NIASPAN [Suspect]
     Indication: BLOOD CHOLESTEROL INCREASED
     Dosage: 1 IN 1 DAY, AT BEDTIME
     Dates: start: 20120301, end: 20120407

REACTIONS (2)
  - HERPES ZOSTER [None]
  - RASH [None]
